FAERS Safety Report 8231993-2 (Version None)
Quarter: 2012Q1

REPORT INFORMATION
  Report Type: 
  Country: None (occurrence: None)
  Receive Date: 20120323
  Receipt Date: 20120316
  Transmission Date: 20120608
  Serious: Yes (Other)
  Sender: FDA-Public Use
  Company Number: TW-JNJFOC-20120310009

PATIENT
  Age: 83 Year
  Sex: Female

DRUGS (7)
  1. FENTANYL [Suspect]
     Indication: PRODUCT USED FOR UNKNOWN INDICATION
     Dosage: STARTED ON 07-JUL YEAR (UNPECIFIED) AT 4:00
     Route: 062
  2. UNKNOWN MEDICATION [Concomitant]
     Dosage: STOPPED ON 09-JUL
     Route: 065
  3. PROPRANOLOL [Concomitant]
     Route: 065
  4. DEPYRETIN (ACETAMINOPHEN) [Concomitant]
     Route: 065
  5. BOKEY [Concomitant]
     Route: 065
  6. NEXIUM [Concomitant]
     Route: 065
  7. WARFARIN SODIUM [Suspect]
     Indication: PRODUCT USED FOR UNKNOWN INDICATION
     Dosage: STOPPED ON 08-JUL
     Route: 065

REACTIONS (2)
  - DYSPNOEA [None]
  - OXYGEN SATURATION DECREASED [None]
